FAERS Safety Report 17260744 (Version 1)
Quarter: 2020Q1

REPORT INFORMATION
  Report Type: Report from Study
  Country: US (occurrence: US)
  Receive Date: 20200113
  Receipt Date: 20200113
  Transmission Date: 20200409
  Serious: Yes (Hospitalization)
  Sender: FDA-Public Use
  Company Number: US-PFIZER INC-2019062341

PATIENT
  Age: 81 Year
  Sex: Female

DRUGS (3)
  1. SUTENT [Suspect]
     Active Substance: SUNITINIB MALATE
     Indication: RENAL CANCER
     Dosage: 12.5 MG, CYCLIC (12.5MG - 1 TAB ON EVEN DAYS, 2 TABS ON ODD DAYS FOR 2 WEEKS ON, 1 WEEK OFF)
     Route: 048
     Dates: start: 20160101
  2. SUTENT [Suspect]
     Active Substance: SUNITINIB MALATE
     Dosage: 25 MG, CYCLIC
     Route: 048
     Dates: start: 201905, end: 201909
  3. SUTENT [Suspect]
     Active Substance: SUNITINIB MALATE
     Dosage: 25 MG, CYCLIC
     Dates: start: 201912

REACTIONS (11)
  - Fatigue [Unknown]
  - Blood pressure fluctuation [Unknown]
  - Muscle spasms [Unknown]
  - Night sweats [Unknown]
  - Blood glucose fluctuation [Unknown]
  - Pulmonary oedema [Unknown]
  - Pneumonia [Unknown]
  - Oxygen saturation decreased [Unknown]
  - Taste disorder [Unknown]
  - Urinary tract infection [Not Recovered/Not Resolved]
  - Oedema peripheral [Not Recovered/Not Resolved]
